FAERS Safety Report 9997532 (Version 1)
Quarter: 2014Q1

REPORT INFORMATION
  Report Type: Spontaneous
  Country: US (occurrence: US)
  Receive Date: 20140311
  Receipt Date: 20140311
  Transmission Date: 20141002
  Serious: No
  Sender: FDA-Public Use
  Company Number: US-GLAXOSMITHKLINE-A1055494A

PATIENT
  Age: 42 Year
  Sex: Female

DRUGS (1)
  1. NICORETTE CINNAMON SURGE OTC 2MG [Suspect]
     Indication: EX-TOBACCO USER
     Dates: start: 20131225, end: 20131225

REACTIONS (5)
  - Oedema mouth [Recovered/Resolved]
  - Oral mucosal exfoliation [Recovered/Resolved]
  - Gingival disorder [Recovered/Resolved]
  - Gingival pain [Recovered/Resolved]
  - Nicotine dependence [Unknown]
